FAERS Safety Report 8199431-6 (Version None)
Quarter: 2012Q1

REPORT INFORMATION
  Report Type: 
  Country: None (occurrence: None)
  Receive Date: 20120309
  Receipt Date: 20120308
  Transmission Date: 20120608
  Serious: Yes (Life-Threatening, Hospitalization, Other)
  Sender: FDA-Public Use
  Company Number: FR-ABBOTT-11P-056-0729875-00

PATIENT
  Sex: Male

DRUGS (15)
  1. ACTOS [Suspect]
     Indication: TYPE 2 DIABETES MELLITUS
     Route: 048
     Dates: start: 20060301, end: 20100201
  2. ALLOPURINOL [Suspect]
     Indication: HYPERURICAEMIA
     Route: 048
  3. ASPIRIN [Suspect]
     Indication: CONGESTIVE CARDIOMYOPATHY
     Route: 048
     Dates: start: 20091201
  4. METFORMIN HCL [Concomitant]
     Indication: TYPE 2 DIABETES MELLITUS
     Route: 048
  5. JANUVIA [Suspect]
     Indication: TYPE 2 DIABETES MELLITUS
     Route: 048
     Dates: start: 20091001
  6. KAYEXALATE [Suspect]
     Indication: HYPERKALAEMIA
     Route: 048
     Dates: start: 20100501
  7. PRAZOSIN HCL [Suspect]
     Indication: HYPERTENSION
     Route: 048
     Dates: end: 20100201
  8. DIAMICRON [Suspect]
     Indication: TYPE 2 DIABETES MELLITUS
     Route: 048
     Dates: end: 20100330
  9. PRAZOSIN HCL [Suspect]
     Indication: CONGESTIVE CARDIOMYOPATHY
  10. MINIRIN [Suspect]
     Indication: DIABETES INSIPIDUS
     Route: 048
     Dates: start: 19950101
  11. PERINDOPRIL ERBUMINE [Suspect]
     Indication: CONGESTIVE CARDIOMYOPATHY
     Route: 048
     Dates: start: 20091201
  12. KAYEXALATE [Suspect]
     Indication: CONGESTIVE CARDIOMYOPATHY
  13. BISOPROLOL FUMARATE [Suspect]
     Indication: CONGESTIVE CARDIOMYOPATHY
     Route: 048
     Dates: start: 20091201
  14. VICTOZA [Concomitant]
     Indication: TYPE 2 DIABETES MELLITUS
     Route: 048
  15. FENOFIBRATE [Suspect]
     Indication: HYPERTRIGLYCERIDAEMIA
     Route: 048

REACTIONS (8)
  - HYPERURICAEMIA [None]
  - BLADDER CANCER STAGE II [None]
  - INFECTIOUS PERITONITIS [None]
  - CARDIAC FAILURE [None]
  - CARDIOMYOPATHY [None]
  - CONGESTIVE CARDIOMYOPATHY [None]
  - APPENDICITIS [None]
  - TYPE 2 DIABETES MELLITUS [None]
